FAERS Safety Report 20113686 (Version 2)
Quarter: 2021Q4

REPORT INFORMATION
  Report Type: Spontaneous
  Country: DE (occurrence: DE)
  Receive Date: 20211125
  Receipt Date: 20211130
  Transmission Date: 20220304
  Serious: Yes (Other)
  Sender: FDA-Public Use
  Company Number: None

PATIENT
  Age: 65 Year
  Sex: Female
  Weight: 58 kg

DRUGS (5)
  1. CANDESARTAN [Suspect]
     Active Substance: CANDESARTAN
     Indication: Essential hypertension
     Dosage: 4 MILLIGRAM, QD, (VARIOUS TESTS WITH 4 TO 16MG)
     Route: 048
     Dates: start: 20180813, end: 20190417
  2. CANDESARTAN [Suspect]
     Active Substance: CANDESARTAN
     Indication: Hypertension
     Dosage: UNK, VARIOUS TESTS WITH 4 TO 16MG
     Route: 048
     Dates: start: 20190320, end: 20210430
  3. CANDESARTAN [Suspect]
     Active Substance: CANDESARTAN
     Dosage: 8 MILLIGRAM, QD
     Route: 048
     Dates: start: 20190417, end: 20191023
  4. CANDESARTAN [Suspect]
     Active Substance: CANDESARTAN
     Dosage: 16 MILLIGRAM, QD
     Route: 048
     Dates: start: 20191025, end: 20200504
  5. CANDESARTAN [Suspect]
     Active Substance: CANDESARTAN
     Dosage: 4 MILLIGRAM, QD
     Dates: start: 20200504, end: 20210430

REACTIONS (6)
  - Hypertensive crisis [Recovered/Resolved]
  - Hypertensive encephalopathy [Recovered/Resolved]
  - Tachycardia [Recovered/Resolved]
  - Blood pressure fluctuation [Recovered/Resolved]
  - Headache [Recovered/Resolved]
  - Dizziness [Recovered/Resolved]

NARRATIVE: CASE EVENT DATE: 20190401
